FAERS Safety Report 6307504-5 (Version None)
Quarter: 2009Q3

REPORT INFORMATION
  Report Type: 
  Country: None (occurrence: None)
  Receive Date: 20090813
  Receipt Date: 20090810
  Transmission Date: 20100115
  Serious: Yes (Hospitalization)
  Sender: FDA-Public Use
  Company Number: FR-BRISTOL-MYERS SQUIBB COMPANY-14736011

PATIENT
  Age: 60 Year
  Sex: Female
  Weight: 67 kg

DRUGS (12)
  1. ORENCIA [Suspect]
     Dosage: INFUSION GIVEN ON :12-DEC-2008, 09-JAN-2009
     Route: 042
     Dates: start: 20050901, end: 20090306
  2. SYMBICORT [Concomitant]
  3. BRICANYL [Concomitant]
  4. AZOPT [Concomitant]
  5. NICARDIPINE HCL [Concomitant]
  6. ACTONEL [Concomitant]
  7. UVEDOSE [Concomitant]
  8. IDEOS [Concomitant]
  9. MOPRAL [Concomitant]
  10. COLIMYCINE [Concomitant]
     Dosage: AEROSOLS OF COLIMYCINE
  11. ARAVA [Concomitant]
     Dosage: 1 DF = 10 TO 20 MG
     Dates: start: 20010101
  12. CORTANCYL [Concomitant]
     Dosage: INCREASED TO 20MG/DAY THEN GRADUAL DECREASE

REACTIONS (3)
  - BRONCHOSPASM [None]
  - EOSINOPHIL COUNT INCREASED [None]
  - INTERSTITIAL LUNG DISEASE [None]
